FAERS Safety Report 4842841-2 (Version None)
Quarter: 2005Q4

REPORT INFORMATION
  Report Type: 
  Country: None (occurrence: None)
  Receive Date: 20051130
  Receipt Date: 20051117
  Transmission Date: 20060501
  Serious: Yes (Hospitalization)
  Sender: FDA-Public Use
  Company Number: 2005157061

PATIENT
  Age: 68 Year
  Sex: Female

DRUGS (2)
  1. MEDROL [Suspect]
     Indication: RHEUMATOID ARTHRITIS
     Dosage: 2 MG (DAILY), ORAL
     Route: 048
     Dates: start: 20031101, end: 20051117
  2. ARAVA [Suspect]
     Indication: RHEUMATOID ARTHRITIS
     Dosage: 20 MG (DAILY), ORAL
     Route: 048
     Dates: start: 20031101, end: 20051001

REACTIONS (1)
  - PULMONARY TUBERCULOSIS [None]
